FAERS Safety Report 11493238 (Version 1)
Quarter: 2015Q3

REPORT INFORMATION
  Report Type: Spontaneous
  Country: US (occurrence: US)
  Receive Date: 20150911
  Receipt Date: 20150911
  Transmission Date: 20151125
  Serious: No
  Sender: FDA-Public Use
  Company Number: US-ROCHE-1041137

PATIENT
  Sex: Female
  Weight: 53.57 kg

DRUGS (4)
  1. NEUPOGEN [Suspect]
     Active Substance: FILGRASTIM
     Indication: CHRONIC HEPATITIS C
     Route: 065
  2. PEGASYS [Suspect]
     Active Substance: PEGINTERFERON ALFA-2A
     Indication: CHRONIC HEPATITIS C
     Route: 058
     Dates: start: 20110707
  3. RIBAVIRIN. [Suspect]
     Active Substance: RIBAVIRIN
     Indication: CHRONIC HEPATITIS C
     Route: 048
  4. PEGASYS [Suspect]
     Active Substance: PEGINTERFERON ALFA-2A
     Route: 065

REACTIONS (10)
  - White blood cell count decreased [Unknown]
  - Hot flush [Unknown]
  - Weight increased [Unknown]
  - Insomnia [Unknown]
  - Cognitive disorder [Unknown]
  - Dry skin [Unknown]
  - Hyperhidrosis [Unknown]
  - Arthralgia [Unknown]
  - Alopecia [Unknown]
  - Speech disorder [Unknown]
